FAERS Safety Report 6574283-6 (Version None)
Quarter: 2010Q1

REPORT INFORMATION
  Report Type: 
  Country: None (occurrence: None)
  Receive Date: 20100208
  Receipt Date: 20100203
  Transmission Date: 20100710
  Serious: Yes (Death, Life-Threatening, Hospitalization, Other)
  Sender: FDA-Public Use
  Company Number: AU-ABBOTT-10P-008-0621372-00

PATIENT
  Sex: Male
  Weight: 65 kg

DRUGS (3)
  1. KALETRA [Suspect]
     Indication: HIV INFECTION
     Dates: start: 20050501, end: 20060801
  2. KALETRA [Suspect]
     Dosage: 200/50
     Dates: start: 20060801, end: 20091116
  3. TRUVADA [Suspect]
     Indication: HIV INFECTION
     Dates: start: 20060801, end: 20091116

REACTIONS (11)
  - ANAL CANCER METASTATIC [None]
  - CONFUSIONAL STATE [None]
  - COUGH [None]
  - DYSPNOEA [None]
  - LEUKOPENIA [None]
  - LYMPHOPENIA [None]
  - METASTASES TO LIVER [None]
  - METASTASES TO LUNG [None]
  - METASTASES TO LYMPH NODES [None]
  - PNEUMONIA [None]
  - RESPIRATORY FAILURE [None]
